FAERS Safety Report 8464661-2 (Version None)
Quarter: 2012Q2

REPORT INFORMATION
  Report Type: 
  Country: None (occurrence: None)
  Receive Date: 20120626
  Receipt Date: 20120613
  Transmission Date: 20120825
  Serious: Yes (Death, Hospitalization)
  Sender: FDA-Public Use
  Company Number: DE-JNJFOC-20120507633

PATIENT
  Sex: Male
  Weight: 91 kg

DRUGS (7)
  1. ENOXAPARIN SODIUM [Concomitant]
  2. METOPROLOL [Concomitant]
  3. OMEPRAZOLE [Concomitant]
  4. RIVAROXABAN [Suspect]
     Indication: CEREBROVASCULAR ACCIDENT PROPHYLAXIS
     Route: 048
     Dates: start: 20120111, end: 20120416
  5. TILIDIN COMP [Concomitant]
     Dates: start: 20120410, end: 20120423
  6. RIVAROXABAN [Suspect]
     Indication: ATRIAL FIBRILLATION
     Route: 048
     Dates: start: 20120111, end: 20120416
  7. LEVOTHYROXINE SODIUM [Concomitant]

REACTIONS (5)
  - FALL [None]
  - HEPARIN-INDUCED THROMBOCYTOPENIA [None]
  - HAEMATURIA [None]
  - JOINT INJURY [None]
  - SPINAL COLUMN INJURY [None]
